FAERS Safety Report 23700827 (Version 1)
Quarter: 2024Q2

REPORT INFORMATION
  Report Type: Spontaneous
  Country: US (occurrence: US)
  Receive Date: 20240403
  Receipt Date: 20240403
  Transmission Date: 20240715
  Serious: No
  Sender: FDA-Public Use
  Company Number: US-JNJFOC-20240365229

PATIENT
  Sex: Female

DRUGS (1)
  1. WOMENS ROGAINE [Suspect]
     Active Substance: MINOXIDIL
     Indication: Alopecia
     Dosage: DROPPER AT LINE RECOMMENDED
     Route: 065
     Dates: start: 20231201

REACTIONS (4)
  - Headache [Unknown]
  - Dry eye [Recovering/Resolving]
  - Visual impairment [Unknown]
  - Therapeutic product effect incomplete [Unknown]

NARRATIVE: CASE EVENT DATE: 20231201
